FAERS Safety Report 7529360-X (Version None)
Quarter: 2011Q2

REPORT INFORMATION
  Report Type: 
  Country: None (occurrence: None)
  Receive Date: 20110607
  Receipt Date: 20110531
  Transmission Date: 20111010
  Serious: Yes (Death, Hospitalization)
  Sender: FDA-Public Use
  Company Number: US-ROCHE-780780

PATIENT
  Sex: Male

DRUGS (7)
  1. OXYCODONE/ACETAMINOPHEN [Suspect]
     Route: 065
  2. IRINOTECAN HYDROCHLORIDE [Suspect]
     Route: 065
  3. FENTANYL [Suspect]
     Route: 065
  4. CETUXIMAB [Suspect]
     Route: 042
     Dates: start: 20110502
  5. BEVACIZUMAB [Suspect]
     Route: 065
  6. CETUXIMAB [Suspect]
     Indication: COLORECTAL CANCER
     Route: 042
     Dates: start: 20110215, end: 20110502
  7. DIPHENHYDRAMINE HYDROCHLORIDE [Concomitant]

REACTIONS (2)
  - NEOPLASM MALIGNANT [None]
  - CEREBROVASCULAR ACCIDENT [None]
